FAERS Safety Report 6047869-5 (Version None)
Quarter: 2009Q1

REPORT INFORMATION
  Report Type: 
  Country: None (occurrence: None)
  Receive Date: 20090123
  Receipt Date: 20090112
  Transmission Date: 20090719
  Serious: Yes (Death, Hospitalization)
  Sender: FDA-Public Use
  Company Number: PL-WYE-H05274108

PATIENT
  Sex: Male

DRUGS (5)
  1. CORDARONE [Suspect]
  2. POLFILIN [Concomitant]
  3. DIAPREL [Concomitant]
  4. ACETYLSALICYLIC ACID SRT [Concomitant]
     Indication: PROPHYLAXIS
     Dosage: 75 MG (FREQUENCY UNSPECIFIED)
     Route: 048
     Dates: start: 20050315
  5. VERAPAMIL [Concomitant]

REACTIONS (2)
  - HAEMORRHAGIC STROKE [None]
  - HYPERTHYROIDISM [None]
